FAERS Safety Report 5096228-0 (Version None)
Quarter: 2006Q3

REPORT INFORMATION
  Report Type: 
  Country: None (occurrence: None)
  Receive Date: 20060905
  Receipt Date: 20060823
  Transmission Date: 20061208
  Serious: Yes (Hospitalization)
  Sender: FDA-Public Use
  Company Number: JP-MERCK-0608USA06736

PATIENT
  Age: 3 Year
  Sex: Male

DRUGS (5)
  1. DECADRON [Suspect]
     Indication: MENINGITIS LISTERIA
     Route: 048
  2. CARBENIN [Suspect]
     Indication: MENINGITIS LISTERIA
     Route: 042
  3. CEFOTAX [Concomitant]
     Indication: MENINGITIS LISTERIA
     Route: 042
  4. UNASYN [Concomitant]
     Indication: MENINGITIS LISTERIA
     Route: 042
  5. GENTACIN [Concomitant]
     Indication: MENINGITIS LISTERIA
     Route: 042

REACTIONS (1)
  - PYREXIA [None]
